FAERS Safety Report 7134750-3 (Version None)
Quarter: 2010Q4

REPORT INFORMATION
  Report Type: 
  Country: None (occurrence: None)
  Receive Date: 20101203
  Receipt Date: 20101130
  Transmission Date: 20110411
  Serious: Yes (Hospitalization)
  Sender: FDA-Public Use
  Company Number: ES-ROCHE-741250

PATIENT
  Age: 29 Year
  Sex: Male

DRUGS (1)
  1. AVASTIN [Suspect]
     Indication: MYOPIA
     Dosage: INTRAVITREOUS ROUTE
     Route: 031
     Dates: start: 20100122, end: 20100122

REACTIONS (1)
  - ENDOPHTHALMITIS [None]
